FAERS Safety Report 7518563-6 (Version None)
Quarter: 2011Q2

REPORT INFORMATION
  Report Type: 
  Country: None (occurrence: None)
  Receive Date: 20110523
  Receipt Date: 20110508
  Transmission Date: 20111010
  Serious: Yes (Hospitalization)
  Sender: FDA-Public Use
  Company Number: AUR-APL-2011-01692

PATIENT

DRUGS (5)
  1. CLARITHROMYCIN [Suspect]
     Dosage: ORAL
     Route: 048
  2. BISOPROLOL FUMARATE [Suspect]
     Dosage: 300MG - ORAL
     Route: 048
  3. SIMVASTATIN [Suspect]
     Dosage: 10000MG - ORAL
     Route: 048
  4. IBUPROFEN [Suspect]
     Dosage: 6000MG - ORAL
     Route: 048
  5. DIMENHYDRINATE [Suspect]
     Dosage: ORAL
     Route: 048

REACTIONS (3)
  - SOMNOLENCE [None]
  - SUICIDE ATTEMPT [None]
  - INCORRECT DOSE ADMINISTERED [None]
